FAERS Safety Report 8989816 (Version 2)
Quarter: 2013Q1

REPORT INFORMATION
  Report Type: Spontaneous
  Country: GB (occurrence: GB)
  Receive Date: 20121228
  Receipt Date: 20130214
  Transmission Date: 20140127
  Serious: Yes (Other)
  Sender: FDA-Public Use
  Company Number: GB-TEVA-377167ISR

PATIENT
  Sex: Female

DRUGS (4)
  1. PHENYTOIN [Suspect]
     Indication: CONVULSION
  2. TEGRETOL [Suspect]
     Indication: CONVULSION
     Dosage: 200 MG, BID FOR MORE THAN 30 YEARS
  3. TEGRETOL [Suspect]
     Dosage: 200 MG, BID
  4. TEGRETOL [Suspect]
     Dosage: 300 MG, BID

REACTIONS (6)
  - Convulsion [Unknown]
  - Lymphadenopathy [Unknown]
  - Myalgia [Unknown]
  - Anxiety [Unknown]
  - Muscular weakness [Unknown]
  - Malaise [Unknown]
